FAERS Safety Report 5298085-6 (Version None)
Quarter: 2007Q2

REPORT INFORMATION
  Report Type: 
  Country: None (occurrence: None)
  Receive Date: 20070416
  Receipt Date: 20070403
  Transmission Date: 20071010
  Serious: Yes (Disabling, Other)
  Sender: FDA-Public Use
  Company Number: PHRM2007FR01176

PATIENT
  Sex: Male
  Weight: 65 kg

DRUGS (3)
  1. ZOMETA [Suspect]
     Indication: METASTASES TO BONE
     Dosage: 4 MG, QMO
     Route: 042
     Dates: start: 20050701, end: 20070301
  2. TAXOTERE [Concomitant]
     Indication: PROSTATE CANCER METASTATIC
  3. NOVANTRONE [Concomitant]
     Indication: PROSTATE CANCER METASTATIC

REACTIONS (2)
  - OSTEONECROSIS [None]
  - TOOTH EXTRACTION [None]
